FAERS Safety Report 10172626 (Version 2)
Quarter: 2014Q2

REPORT INFORMATION
  Report Type: Report from Study
  Country: DE (occurrence: DE)
  Receive Date: 20140515
  Receipt Date: 20140521
  Transmission Date: 20141212
  Serious: Yes (Death, Other)
  Sender: FDA-Public Use
  Company Number: DE-ABBVIE-14P-062-1237055-00

PATIENT
  Age: 71 Year
  Sex: Male

DRUGS (1)
  1. LEUPRORELIN [Suspect]
     Indication: PROSTATE CANCER
     Dates: start: 20130125, end: 20140427

REACTIONS (3)
  - Hepatic failure [Fatal]
  - Pancreatic carcinoma [Unknown]
  - Metastases to liver [Unknown]
